FAERS Safety Report 18658786 (Version 3)
Quarter: 2021Q1

REPORT INFORMATION
  Report Type: Spontaneous
  Country: GB (occurrence: GB)
  Receive Date: 20201224
  Receipt Date: 20210225
  Transmission Date: 20210419
  Serious: Yes (Other)
  Sender: FDA-Public Use
  Company Number: GB-BIOVITRUM-2020GB7887

PATIENT
  Age: 54 Year
  Sex: Male

DRUGS (42)
  1. ORFADIN [Suspect]
     Active Substance: NITISINONE
     Dates: start: 2019
  2. PREGABALIN. [Concomitant]
     Active Substance: PREGABALIN
     Dates: start: 2013
  3. PREGABALIN. [Concomitant]
     Active Substance: PREGABALIN
     Dates: start: 2015
  4. ALENDRONIC ACID [Concomitant]
     Active Substance: ALENDRONIC ACID
     Dates: start: 2015, end: 2018
  5. VITAMIN D [Concomitant]
     Active Substance: VITAMIN D NOS
     Dates: start: 2016
  6. OMEPRAZOLE. [Concomitant]
     Active Substance: OMEPRAZOLE
     Dates: start: 2016
  7. LOSARTAN. [Concomitant]
     Active Substance: LOSARTAN
     Dosage: TABLET
     Dates: start: 2020
  8. SIMVASTATIN. [Concomitant]
     Active Substance: SIMVASTATIN
     Dates: start: 2013
  9. SIMVASTATIN. [Concomitant]
     Active Substance: SIMVASTATIN
     Dates: start: 2020
  10. ORFADIN [Suspect]
     Active Substance: NITISINONE
     Dates: start: 2018
  11. FULTIUM D3 [Concomitant]
     Active Substance: CHOLECALCIFEROL
     Dates: start: 2013, end: 2015
  12. OXYCODONE [Concomitant]
     Active Substance: OXYCODONE
     Dates: start: 2013
  13. BENDROFLUAZIDE [Concomitant]
     Active Substance: BENDROFLUMETHIAZIDE
     Dates: start: 2014
  14. TAMULOSIN [Concomitant]
     Active Substance: TAMSULOSIN
     Dates: start: 2015
  15. ACCRETE D3 [Concomitant]
     Active Substance: CALCIUM CARBONATE\CHOLECALCIFEROL
     Dates: start: 2016
  16. FOLIC ACID. [Concomitant]
     Active Substance: FOLIC ACID
     Dates: start: 2016, end: 2019
  17. ORFADIN [Suspect]
     Active Substance: NITISINONE
     Dates: start: 2014
  18. ORFADIN [Suspect]
     Active Substance: NITISINONE
     Dates: start: 2016
  19. AMITRIPTYLINE [Concomitant]
     Active Substance: AMITRIPTYLINE
     Dates: start: 2015
  20. DOXAZOSIN [Concomitant]
     Active Substance: DOXAZOSIN MESYLATE
     Dates: start: 2013
  21. ORFADIN [Suspect]
     Active Substance: NITISINONE
     Indication: ALKAPTONURIA
     Dates: start: 2013
  22. BENDROFLUMETHIAZIDE [Concomitant]
     Active Substance: BENDROFLUMETHIAZIDE
     Dates: start: 2013
  23. BENDROFLUMETHIAZIDE [Concomitant]
     Active Substance: BENDROFLUMETHIAZIDE
     Dates: start: 2015
  24. PIROXICAM. [Concomitant]
     Active Substance: PIROXICAM
     Dates: start: 2013
  25. VITAMIN CAPSULES [Concomitant]
     Dates: start: 2015
  26. CYANOCOBALAMIN. [Concomitant]
     Active Substance: CYANOCOBALAMIN
     Dates: start: 2013
  27. MEBEVERINE [Concomitant]
     Active Substance: MEBEVERINE
     Dates: start: 2019
  28. FLUOXETINE [Concomitant]
     Active Substance: FLUOXETINE HYDROCHLORIDE
     Dates: start: 2013
  29. LOSARTAN. [Concomitant]
     Active Substance: LOSARTAN
     Dates: start: 2013
  30. ORFADIN [Suspect]
     Active Substance: NITISINONE
     Dates: start: 2015
  31. ORFADIN [Suspect]
     Active Substance: NITISINONE
     Dates: start: 2017
  32. CYNOCOBALAMIN [Concomitant]
  33. LIDOCAINE. [Concomitant]
     Active Substance: LIDOCAINE
     Dosage: 5 PERCENT
     Dates: start: 2015
  34. TYR RED COOLER [Concomitant]
     Dates: start: 2017, end: 2019
  35. CETRABEN [Concomitant]
     Dates: start: 2018
  36. ASCORBIC ACID. [Concomitant]
     Active Substance: ASCORBIC ACID
     Dates: start: 2016
  37. ORFADIN [Suspect]
     Active Substance: NITISINONE
     Dates: start: 2020
  38. MINOXIDIL. [Concomitant]
     Active Substance: MINOXIDIL
     Dates: start: 2013
  39. ASCORBIC ACID. [Concomitant]
     Active Substance: ASCORBIC ACID
     Dates: start: 2015
  40. PARACETAMOL [Concomitant]
     Active Substance: ACETAMINOPHEN
     Dates: start: 2015
  41. PEPTAC [Concomitant]
     Active Substance: RANITIDINE HYDROCHLORIDE
     Dates: start: 2017
  42. OXIDIL [Concomitant]
     Active Substance: CEFTRIAXONE SODIUM
     Dates: start: 2020

REACTIONS (3)
  - Amino acid level increased [Not Recovered/Not Resolved]
  - Conjunctivitis [Not Recovered/Not Resolved]
  - Lenticular opacities [Not Recovered/Not Resolved]

NARRATIVE: CASE EVENT DATE: 2013
